FAERS Safety Report 9861876 (Version 1)
Quarter: 2014Q1

REPORT INFORMATION
  Report Type: Spontaneous
  Country: US (occurrence: US)
  Receive Date: 20140203
  Receipt Date: 20140203
  Transmission Date: 20141002
  Serious: Yes (Other)
  Sender: FDA-Public Use
  Company Number: US-PERRIGO-14US000769

PATIENT
  Age: 32 Year
  Sex: Female
  Weight: 77.98 kg

DRUGS (1)
  1. IBUPROFEN 200MG-DIPHENHYDRAMINE CITRATE 38 MG 050 [Suspect]
     Indication: INTENTIONAL OVERDOSE
     Dosage: APPROXIMATELY 50 TABLETS, SINGLE
     Route: 048
     Dates: start: 20140123, end: 20140123

REACTIONS (2)
  - Intentional overdose [Unknown]
  - Delirium [Recovering/Resolving]
